FAERS Safety Report 21743843 (Version 1)
Quarter: 2022Q4

REPORT INFORMATION
  Report Type: Spontaneous
  Country: CA (occurrence: CA)
  Receive Date: 20221217
  Receipt Date: 20221217
  Transmission Date: 20230113
  Serious: Yes (Other)
  Sender: FDA-Public Use
  Company Number: CA-002147023-NVSC2022CA289520

PATIENT
  Age: 52 Year
  Sex: Female

DRUGS (1)
  1. DEXAMETHASONE [Suspect]
     Active Substance: DEXAMETHASONE
     Indication: Glioblastoma
     Dosage: UNK
     Route: 065

REACTIONS (3)
  - Cellulitis [Unknown]
  - Confusional state [Unknown]
  - Oedema [Unknown]
